FAERS Safety Report 18724581 (Version 1)
Quarter: 2021Q1

REPORT INFORMATION
  Report Type: Spontaneous
  Country: US (occurrence: US)
  Receive Date: 20210111
  Receipt Date: 20210111
  Transmission Date: 20210419
  Serious: No
  Sender: FDA-Public Use
  Company Number: None

PATIENT
  Age: 12 Month
  Sex: Female
  Weight: 10.9 kg

DRUGS (5)
  1. IMDEVIMAB. [Suspect]
     Active Substance: IMDEVIMAB
     Indication: ASYMPTOMATIC COVID-19
     Dosage: ?          OTHER FREQUENCY:ONCE;?
     Route: 041
     Dates: start: 20210108, end: 20210108
  2. IMDEVIMAB. [Concomitant]
     Active Substance: IMDEVIMAB
     Dates: start: 20210108, end: 20210108
  3. NORMAL SALINE [Concomitant]
     Active Substance: SODIUM CHLORIDE
     Dates: start: 20210108, end: 20210108
  4. CASIRIVIMAB. [Suspect]
     Active Substance: CASIRIVIMAB
     Indication: ASYMPTOMATIC COVID-19
     Dosage: ?          OTHER FREQUENCY:ONCE;?
     Route: 041
     Dates: start: 20210108, end: 20210108
  5. CASIRIVIMAB. [Concomitant]
     Active Substance: CASIRIVIMAB
     Dates: start: 20210108, end: 20210108

REACTIONS (5)
  - Wrong product administered [None]
  - Product label confusion [None]
  - Product packaging confusion [None]
  - Product use issue [None]
  - Product barcode issue [None]

NARRATIVE: CASE EVENT DATE: 20210108
